FAERS Safety Report 7768043-8 (Version None)
Quarter: 2011Q3

REPORT INFORMATION
  Report Type: 
  Country: None (occurrence: None)
  Receive Date: 20110919
  Receipt Date: 20110906
  Transmission Date: 20111222
  Serious: Yes (Hospitalization, Other)
  Sender: FDA-Public Use
  Company Number: INT_00025_2011

PATIENT
  Sex: Female

DRUGS (17)
  1. CITALOPRAM [Concomitant]
  2. PIPERACILLIN AND TAZOBACTAM [Concomitant]
  3. TOBRAMYCIN [Concomitant]
  4. CIPROFLOXACIN [Concomitant]
  5. FLUTICASONE PROPIONATE [Concomitant]
  6. PULMOZYME [Concomitant]
  7. ADVAIR DISKUS 100/50 [Concomitant]
  8. AZITHROMYCIN [Concomitant]
  9. ACETAMINOPHEN [Concomitant]
  10. CEFEPIME [Suspect]
     Indication: PNEUMONIA
     Dosage: (2 G TID INTRAVENOUS (NOT OTHERWISE SPECIFIED))
     Route: 042
     Dates: start: 20101115, end: 20101117
  11. VANCOMYCIN [Concomitant]
  12. SODIUM CHLORIDE [Concomitant]
  13. ALBUTEROL SULFATE [Concomitant]
  14. TRAZODONE HYDROCHLORIDE [Concomitant]
  15. PANCRELIPASE [Concomitant]
  16. HYPERTONIC SALINE SOLUTION [Concomitant]
  17. HEPARIN [Concomitant]

REACTIONS (6)
  - ASPARTATE AMINOTRANSFERASE INCREASED [None]
  - OROPHARYNGEAL PAIN [None]
  - TYPE IV HYPERSENSITIVITY REACTION [None]
  - PRODUCTIVE COUGH [None]
  - ALANINE AMINOTRANSFERASE INCREASED [None]
  - BLOOD ALKALINE PHOSPHATASE INCREASED [None]
